FAERS Safety Report 12076018 (Version 2)
Quarter: 2016Q3

REPORT INFORMATION
  Report Type: Spontaneous
  Country: JP (occurrence: JP)
  Receive Date: 20160215
  Receipt Date: 20160707
  Transmission Date: 20161109
  Serious: Yes (Hospitalization, Other)
  Sender: FDA-Public Use
  Company Number: JP-BRISTOL-MYERS SQUIBB COMPANY-BMS-2016-010494

PATIENT
  Age: 89 Year
  Sex: Female
  Weight: 60 kg

DRUGS (1)
  1. ELIQUIS [Suspect]
     Active Substance: APIXABAN
     Indication: CEREBROVASCULAR ACCIDENT PROPHYLAXIS
     Dosage: 2.5 MG, BID
     Route: 048

REACTIONS (2)
  - Cerebral infarction [Unknown]
  - Drug administration error [Unknown]

NARRATIVE: CASE EVENT DATE: 201601
